FAERS Safety Report 5122925-4 (Version None)
Quarter: 2006Q4

REPORT INFORMATION
  Report Type: 
  Country: None (occurrence: None)
  Receive Date: 20061005
  Receipt Date: 20060919
  Transmission Date: 20070319
  Serious: No
  Sender: FDA-Public Use
  Company Number: DSA_61005_2006

PATIENT
  Age: 58 Year
  Sex: Male

DRUGS (2)
  1. MYSOLINE [Suspect]
     Indication: TREMOR
     Dosage: 50 MG QDAY PO
     Route: 048
     Dates: start: 20060201
  2. WARFARIN SODIUM [Concomitant]

REACTIONS (1)
  - SCHIZOPHRENIA [None]
